FAERS Safety Report 13877134 (Version 1)
Quarter: 2017Q3

REPORT INFORMATION
  Report Type: Spontaneous
  Country: US (occurrence: US)
  Receive Date: 20170814
  Receipt Date: 20170814
  Transmission Date: 20171127
  Serious: No
  Sender: FDA-Public Use
  Company Number: None

PATIENT
  Age: 67 Year
  Sex: Male

DRUGS (5)
  1. PRILOSEC [Concomitant]
     Active Substance: OMEPRAZOLE MAGNESIUM
  2. PRISTIQ EXTENDED-RELEASE [Concomitant]
     Active Substance: DESVENLAFAXINE SUCCINATE
  3. OXYCODONE [Concomitant]
     Active Substance: OXYCODONE
  4. ALPRAZOLAM. [Concomitant]
     Active Substance: ALPRAZOLAM
  5. PROMACTA [Suspect]
     Active Substance: ELTROMBOPAG OLAMINE
     Indication: IMMUNE THROMBOCYTOPENIC PURPURA
     Route: 048
     Dates: start: 20170807, end: 20170814

REACTIONS (2)
  - Therapy cessation [None]
  - Hypoaesthesia [None]

NARRATIVE: CASE EVENT DATE: 20170814
